FAERS Safety Report 6982929-3 (Version None)
Quarter: 2010Q3

REPORT INFORMATION
  Report Type: 
  Country: None (occurrence: None)
  Receive Date: 20100914
  Receipt Date: 20100420
  Transmission Date: 20110219
  Serious: Yes (Other)
  Sender: FDA-Public Use
  Company Number: US-PFIZER INC-2010050703

PATIENT
  Sex: Male
  Weight: 83.9 kg

DRUGS (5)
  1. LYRICA [Suspect]
     Indication: ANEURYSM RUPTURED
     Dosage: UNK
  2. GABAPENTIN [Suspect]
     Indication: ANEURYSM RUPTURED
     Dosage: 300 MG, 3X/DAY
     Route: 048
     Dates: start: 20090101, end: 20100415
  3. SIMVASTATIN [Concomitant]
     Indication: BLOOD CHOLESTEROL INCREASED
     Dosage: 40 MG, DAILY
  4. MORPHINE [Concomitant]
     Indication: PAIN
     Dosage: 60 MG, 3X/DAY
  5. ELAVIL [Concomitant]
     Dosage: 50 MG, DAILY

REACTIONS (2)
  - DRUG INEFFECTIVE [None]
  - SLEEP DISORDER [None]
